FAERS Safety Report 4284711-7 (Version None)
Quarter: 2004Q1

REPORT INFORMATION
  Report Type: 
  Country: None (occurrence: None)
  Receive Date: 20040130
  Receipt Date: 20040119
  Transmission Date: 20041129
  Serious: Yes (Death)
  Sender: FDA-Public Use
  Company Number: APCDSS2003000140

PATIENT
  Age: 8 Year
  Sex: Female

DRUGS (8)
  1. FENTANYL [Suspect]
     Indication: CANCER PAIN
     Dosage: SEE IMAGE
     Dates: start: 20021101, end: 20030101
  2. FENTANYL [Suspect]
     Indication: CANCER PAIN
     Dosage: SEE IMAGE
     Dates: start: 20030101, end: 20030201
  3. BACTRIM [Concomitant]
  4. AMPHOTERICIN B (AMPHOTERICIN B) SYRUP [Concomitant]
  5. ETIZOLAM (ETIZOLAM) [Concomitant]
  6. AMITRIPTYLINE HYDROCHLORIDE [Concomitant]
  7. FLUNITRAZEPAM (FLUNITRAZEPAM) [Concomitant]
  8. CHEMOTHERAPY UNSPECIFIED (ANTINEOPLASTIC AGENTS) [Concomitant]

REACTIONS (8)
  - ANXIOUS PARENT [None]
  - DRUG LEVEL INCREASED [None]
  - GASTROINTESTINAL OBSTRUCTION [None]
  - LUNG NEOPLASM [None]
  - NAUSEA [None]
  - PELVIC NEOPLASM [None]
  - URINARY RETENTION [None]
  - VOMITING [None]
